FAERS Safety Report 5493949-2 (Version None)
Quarter: 2007Q4

REPORT INFORMATION
  Report Type: 
  Country: None (occurrence: None)
  Receive Date: 20071023
  Receipt Date: 20071012
  Transmission Date: 20080405
  Serious: Yes (Life-Threatening, Hospitalization)
  Sender: FDA-Public Use
  Company Number: FR-PFIZER INC-2007087234

PATIENT
  Age: 76 Year
  Sex: Male

DRUGS (4)
  1. TAHOR [Suspect]
     Route: 048
  2. LASIX [Suspect]
     Route: 048
  3. CELECTOL [Suspect]
     Route: 048
  4. APROVEL [Suspect]
     Route: 048

REACTIONS (2)
  - ANURIA [None]
  - RENAL FAILURE ACUTE [None]
